FAERS Safety Report 9868249 (Version 2)
Quarter: 2014Q1

REPORT INFORMATION
  Report Type: Report from Study
  Country: DE (occurrence: DE)
  Receive Date: 20140204
  Receipt Date: 20140218
  Transmission Date: 20141002
  Serious: Yes (Hospitalization, Other)
  Sender: FDA-Public Use
  Company Number: DE-CELGENEUS-062-21880-14013860

PATIENT
  Age: 70 Year
  Sex: Male
  Weight: 63 kg

DRUGS (7)
  1. REVLIMID [Suspect]
     Indication: PLASMA CELL MYELOMA
     Dosage: 25 MILLIGRAM
     Route: 048
     Dates: start: 20130126, end: 20130412
  2. DEXAMETHASONE [Suspect]
     Indication: PLASMA CELL MYELOMA
     Dosage: 40 MILLIGRAM
     Route: 048
     Dates: start: 20130126, end: 20130412
  3. MELPHALAN [Suspect]
     Indication: PLASMA CELL MYELOMA
     Dosage: 70 MILLIGRAM/SQ. METER
     Route: 041
     Dates: start: 20130618, end: 20130619
  4. LENOGRASTIM [Suspect]
     Indication: PLASMA CELL MYELOMA
     Dosage: 263 MICROGRAM
     Route: 058
     Dates: start: 20130510, end: 20130523
  5. CYCLOPHOSPHAMIDE [Suspect]
     Indication: PLASMA CELL MYELOMA
     Route: 065
     Dates: start: 20130503, end: 20130523
  6. ETOPOSIDE [Suspect]
     Indication: PLASMA CELL MYELOMA
     Route: 065
     Dates: start: 20130503, end: 20130523
  7. ZOLEDRONATE [Concomitant]
     Indication: PROPHYLAXIS
     Route: 041
     Dates: start: 20130318

REACTIONS (1)
  - Bladder transitional cell carcinoma [Not Recovered/Not Resolved]
